FAERS Safety Report 9994828 (Version 1)
Quarter: 2014Q1

REPORT INFORMATION
  Report Type: Spontaneous
  Country: GB (occurrence: None)
  Receive Date: 20140306
  Receipt Date: 20140306
  Transmission Date: 20141002
  Serious: Yes (Other)
  Sender: FDA-Public Use
  Company Number: AUR-APL-2014-02244

PATIENT
  Age: 31 Year
  Sex: Female

DRUGS (3)
  1. CITALOPRAM (CITALOPRAM) [Suspect]
     Indication: DEPRESSION
  2. LIOTHYRONINE SODIUM (LIOTHYRONINE SODIUM) [Concomitant]
  3. LEVOTHYROXINE (LEVOTHYROXINE) [Concomitant]

REACTIONS (1)
  - Suicidal ideation [None]
